FAERS Safety Report 10756982 (Version 1)
Quarter: 2015Q1

REPORT INFORMATION
  Report Type: Spontaneous
  Country: BR (occurrence: BR)
  Receive Date: 20150203
  Receipt Date: 20150203
  Transmission Date: 20150721
  Serious: Yes (Other)
  Sender: FDA-Public Use
  Company Number: BR-ROCHE-1527935

PATIENT
  Sex: Male
  Weight: 82 kg

DRUGS (4)
  1. RIVOTRIL [Suspect]
     Active Substance: CLONAZEPAM
     Route: 065
     Dates: start: 20150126
  2. CIPROFIBRATE [Concomitant]
     Active Substance: CIPROFIBRATE
     Indication: BLOOD TRIGLYCERIDES INCREASED
     Route: 065
  3. DIOVAN [Concomitant]
     Active Substance: VALSARTAN
     Indication: HYPERTENSION
     Dosage: 160/5MG
     Route: 065
  4. RIVOTRIL [Suspect]
     Active Substance: CLONAZEPAM
     Indication: ANXIETY
     Route: 065

REACTIONS (8)
  - Anxiety [Recovering/Resolving]
  - Blood triglycerides increased [Not Recovered/Not Resolved]
  - Drug ineffective [Unknown]
  - Arthropathy [Unknown]
  - Pain [Recovering/Resolving]
  - Hepatic steatosis [Unknown]
  - Drug dose omission [Unknown]
  - Cholelithiasis [Unknown]
